FAERS Safety Report 9489696 (Version 1)
Quarter: 2013Q3

REPORT INFORMATION
  Report Type: Spontaneous
  Country: US (occurrence: US)
  Receive Date: 20130829
  Receipt Date: 20130829
  Transmission Date: 20140515
  Serious: No
  Sender: FDA-Public Use
  Company Number: US-009507513-1308USA001703

PATIENT
  Age: 29 Year
  Sex: Female

DRUGS (3)
  1. MAXALT MLT [Suspect]
     Indication: MIGRAINE
     Dosage: 10 MG, ONCE
     Route: 048
     Dates: start: 20130801
  2. ZOFRAN [Concomitant]
  3. IMITREX (SUMATRIPTAN) [Concomitant]

REACTIONS (1)
  - Exposure during pregnancy [Unknown]
